FAERS Safety Report 24436201 (Version 1)
Quarter: 2024Q4

REPORT INFORMATION
  Report Type: Other
  Country: JP (occurrence: JP)
  Receive Date: 20241015
  Receipt Date: 20241015
  Transmission Date: 20250114
  Serious: Yes (Hospitalization)
  Sender: WOODWARD PHARMA SERVICES
  Company Number: JP-WW-2024-10002

PATIENT
  Age: 3 Decade
  Sex: Male

DRUGS (12)
  1. FLUCONAZOLE [Suspect]
     Active Substance: FLUCONAZOLE
     Indication: Meningitis cryptococcal
     Dosage: 400 MG/DAY
     Route: 048
  2. FLUCONAZOLE [Suspect]
     Active Substance: FLUCONAZOLE
     Indication: Meningitis cryptococcal
     Dosage: 200 MG/DAY
     Route: 048
  3. FLUCONAZOLE [Suspect]
     Active Substance: FLUCONAZOLE
     Indication: Meningitis cryptococcal
     Dosage: 400 MG/DAY
     Route: 042
  4. FLUCONAZOLE [Suspect]
     Active Substance: FLUCONAZOLE
     Indication: Meningitis cryptococcal
  5. AMPHOTERICIN B [Concomitant]
     Active Substance: AMPHOTERICIN B
     Indication: Meningitis cryptococcal
     Dosage: 5 MG/ KG
  6. AMPHOTERICIN B [Concomitant]
     Active Substance: AMPHOTERICIN B
     Indication: Meningitis cryptococcal
     Dosage: 3 MG/ KG
  7. FLUCYTOSINE [Concomitant]
     Active Substance: FLUCYTOSINE
     Indication: Meningitis cryptococcal
     Dosage: 25 MG/ KG
  8. ATOVAQUONE [Concomitant]
     Active Substance: ATOVAQUONE
     Indication: Pneumocystis jirovecii pneumonia
  9. GANCICLOVIR [Concomitant]
     Active Substance: GANCICLOVIR
     Indication: Oesophageal ulcer
  10. CEFTRIAXONE [Concomitant]
     Active Substance: CEFTRIAXONE
     Dosage: 2G, QD
  11. CLINDAMYCIN [Concomitant]
     Active Substance: CLINDAMYCIN
  12. bictegravir sodium/ emtricitabine/ tenofovir alafenamide fumarate [Concomitant]
     Indication: Meningitis cryptococcal
     Dosage: 5 MG/KG

REACTIONS (4)
  - Lymphadenitis fungal [Recovered/Resolved]
  - Meningitis cryptococcal [Recovered/Resolved]
  - Pneumonia cryptococcal [Recovered/Resolved]
  - Drug ineffective [Recovered/Resolved]
